FAERS Safety Report 7641696-0 (Version None)
Quarter: 2011Q3

REPORT INFORMATION
  Report Type: 
  Country: None (occurrence: None)
  Receive Date: 20110728
  Receipt Date: 20110719
  Transmission Date: 20111222
  Serious: Yes (Other)
  Sender: FDA-Public Use
  Company Number: HR-GLAXOSMITHKLINE-B0735381A

PATIENT
  Age: 28 Year
  Sex: Female

DRUGS (2)
  1. DIGOXIN [Suspect]
     Indication: TACHYCARDIA FOETAL
     Dosage: .5MG THREE TIMES PER DAY
     Route: 042
  2. AMIODARONE HCL [Suspect]
     Route: 065

REACTIONS (6)
  - TOXICITY TO VARIOUS AGENTS [None]
  - NAUSEA [None]
  - ABDOMINAL PAIN UPPER [None]
  - VOMITING [None]
  - MATERNAL EXPOSURE DURING PREGNANCY [None]
  - LIVE BIRTH [None]
